FAERS Safety Report 21872103 (Version 4)
Quarter: 2023Q2

REPORT INFORMATION
  Report Type: Spontaneous
  Country: JP (occurrence: JP)
  Receive Date: 20230117
  Receipt Date: 20230404
  Transmission Date: 20230722
  Serious: Yes (Life-Threatening, Other)
  Sender: FDA-Public Use
  Company Number: JP-002147023-NVSJ2023JP000707

PATIENT
  Age: 11 Year
  Sex: Male
  Weight: 38.1 kg

DRUGS (3)
  1. NEORAL [Suspect]
     Active Substance: CYCLOSPORINE
     Indication: Nephrotic syndrome
     Dosage: 60 MG, BID
     Route: 048
     Dates: start: 20211005, end: 20211007
  2. NEORAL [Suspect]
     Active Substance: CYCLOSPORINE
     Dosage: 30 MG, BID
     Route: 048
     Dates: start: 20211008, end: 20211015
  3. NEORAL [Suspect]
     Active Substance: CYCLOSPORINE
     Dosage: 30 MG, BID
     Route: 048
     Dates: start: 20211022, end: 20211026

REACTIONS (4)
  - Posterior reversible encephalopathy syndrome [Recovered/Resolved]
  - Hypertension [Recovered/Resolved]
  - Acute kidney injury [Recovered/Resolved]
  - Staphylococcal bacteraemia [Recovered/Resolved]

NARRATIVE: CASE EVENT DATE: 20211007
